FAERS Safety Report 24444635 (Version 2)
Quarter: 2024Q4

REPORT INFORMATION
  Report Type: Report from Study
  Country: US (occurrence: US)
  Receive Date: 20241016
  Receipt Date: 20241017
  Transmission Date: 20250114
  Serious: No
  Sender: ROCHE
  Company Number: US-ROCHE-2795709

PATIENT
  Age: 42 Year
  Sex: Female
  Weight: 52.8 kg

DRUGS (18)
  1. RITUXAN [Suspect]
     Active Substance: RITUXIMAB
     Indication: Chronic inflammatory demyelinating polyradiculoneuropathy
     Dosage: ON DAY(S) 1 AND DAY(S) 15 EVERY 6 MONTH(S), DATE OF TREATMENT: 15/MAY/2024
     Route: 042
     Dates: start: 20230315, end: 20230315
  2. ESCITALOPRAM [Concomitant]
     Active Substance: ESCITALOPRAM OXALATE
     Route: 065
  3. ACETAMINOPHEN [Concomitant]
     Active Substance: ACETAMINOPHEN
  4. ASCORBIC ACID [Concomitant]
     Active Substance: ASCORBIC ACID
  5. BETAMETHASONE DIPROPIONATE [Concomitant]
     Active Substance: BETAMETHASONE DIPROPIONATE
  6. CLOBETASOL [Concomitant]
     Active Substance: CLOBETASOL
  7. CYANOCOBALAMIN [Concomitant]
     Active Substance: CYANOCOBALAMIN
  8. CYCLOBENZAPRINE [Concomitant]
     Active Substance: CYCLOBENZAPRINE
  9. DIPHENHYDRAMINE [Concomitant]
     Active Substance: DIPHENHYDRAMINE
  10. ESCITALOPRAM OXALATE [Concomitant]
     Active Substance: ESCITALOPRAM OXALATE
  11. FLUOCINOLONE ACETONIDE [Concomitant]
     Active Substance: FLUOCINOLONE ACETONIDE
  12. KETOCONAZOLE [Concomitant]
     Active Substance: KETOCONAZOLE
  13. LEVONORGESTREL [Concomitant]
     Active Substance: LEVONORGESTREL
  14. METHYLPREDNISOLONE SODIUM SUCCINATE [Concomitant]
     Active Substance: METHYLPREDNISOLONE SODIUM SUCCINATE
  15. METRONIDAZOLE [Concomitant]
     Active Substance: METRONIDAZOLE
  16. NICOTINE [Concomitant]
     Active Substance: NICOTINE
  17. NITROGLYCERIN [Concomitant]
     Active Substance: NITROGLYCERIN
  18. TRETINOIN [Concomitant]
     Active Substance: TRETINOIN

REACTIONS (2)
  - Off label use [Unknown]
  - No adverse event [Unknown]
